FAERS Safety Report 13562790 (Version 1)
Quarter: 2017Q2

REPORT INFORMATION
  Report Type: Report from Study
  Country: US (occurrence: US)
  Receive Date: 20170519
  Receipt Date: 20170519
  Transmission Date: 20170830
  Serious: Yes (Other)
  Sender: FDA-Public Use
  Company Number: US-BRISTOL-MYERS SQUIBB COMPANY-BMS-2017-027044

PATIENT
  Sex: Male

DRUGS (1)
  1. IPILIMUMAB [Suspect]
     Active Substance: IPILIMUMAB
     Indication: MALIGNANT MELANOMA
     Dosage: 930 MG, UNK
     Route: 042

REACTIONS (9)
  - Hypopituitarism [Unknown]
  - Blood testosterone decreased [Unknown]
  - Rash pruritic [Recovering/Resolving]
  - Blood thyroid stimulating hormone abnormal [Unknown]
  - Headache [Unknown]
  - Surgery [Unknown]
  - Pituitary enlargement [Unknown]
  - Acne [Recovering/Resolving]
  - Speech disorder [Unknown]
